FAERS Safety Report 20796904 (Version 1)
Quarter: 2022Q2

REPORT INFORMATION
  Report Type: Spontaneous
  Country: IE (occurrence: IE)
  Receive Date: 20220506
  Receipt Date: 20220506
  Transmission Date: 20220721
  Serious: Yes (Hospitalization, Other)
  Sender: FDA-Public Use
  Company Number: IE-Accord-260502

PATIENT
  Age: 5 Decade
  Sex: Female

DRUGS (2)
  1. OLANZAPINE [Suspect]
     Active Substance: OLANZAPINE
     Indication: Product used for unknown indication
     Dosage: 10 MILLIGRAM, QD (NIGHT)
  2. SERTRALINE [Concomitant]
     Active Substance: SERTRALINE HYDROCHLORIDE
     Dosage: 10 MILLIGRAM, QD

REACTIONS (7)
  - Intestinal ischaemia [Unknown]
  - Shock haemorrhagic [Recovered/Resolved]
  - Pancreatitis necrotising [Recovered/Resolved]
  - Portal vein thrombosis [Recovered/Resolved]
  - Clostridium difficile infection [Recovered/Resolved]
  - Encephalopathy [Recovered/Resolved]
  - Multiple organ dysfunction syndrome [Recovered/Resolved]
